FAERS Safety Report 13275353 (Version 1)
Quarter: 2017Q1

REPORT INFORMATION
  Report Type: Report from Study
  Country: US (occurrence: US)
  Receive Date: 20170228
  Receipt Date: 20170228
  Transmission Date: 20170428
  Serious: No
  Sender: FDA-Public Use
  Company Number: PHEH2017US005159

PATIENT
  Sex: Male

DRUGS (1)
  1. COSENTYX [Suspect]
     Active Substance: SECUKINUMAB
     Indication: PRODUCT USED FOR UNKNOWN INDICATION
     Route: 065

REACTIONS (6)
  - Skin haemorrhage [Unknown]
  - Feeling abnormal [Unknown]
  - Hypersensitivity [Unknown]
  - Erythema [Unknown]
  - Psoriasis [Unknown]
  - Pruritus [Unknown]
